FAERS Safety Report 26160404 (Version 1)
Quarter: 2025Q4

REPORT INFORMATION
  Report Type: Spontaneous
  Country: US (occurrence: US)
  Receive Date: 20251216
  Receipt Date: 20251216
  Transmission Date: 20260118
  Serious: No
  Sender: ALVOGEN
  Company Number: US-ALVOGEN-2025096305

PATIENT
  Age: 58 Year
  Sex: Male

DRUGS (2)
  1. FENTANYL [Suspect]
     Active Substance: FENTANYL
     Indication: Pain
     Dosage: EXPIRATION: APR-2027?USED 3 PATCHES
     Route: 062
  2. FENTANYL [Suspect]
     Active Substance: FENTANYL
     Indication: Pain
     Dosage: USED FENTANYL FOR THE LAST 2-3 MONTHS
     Route: 062
     Dates: start: 2024

REACTIONS (5)
  - Urticaria [Unknown]
  - Application site swelling [Unknown]
  - Pruritus [Unknown]
  - Application site erythema [Unknown]
  - Rash [Unknown]

NARRATIVE: CASE EVENT DATE: 20250201
